FAERS Safety Report 20556484 (Version 3)
Quarter: 2024Q1

REPORT INFORMATION
  Report Type: Spontaneous
  Country: US (occurrence: US)
  Receive Date: 20220307
  Receipt Date: 20240211
  Transmission Date: 20240409
  Serious: No
  Sender: FDA-Public Use
  Company Number: US-AIMMUNE THERAPEUTICS, INC.-2022AIMT00150

PATIENT

DRUGS (5)
  1. PALFORZIA [Suspect]
     Active Substance: PEANUT
     Indication: Food allergy
     Dosage: IDE (0.5MG-6MG), ONCE
     Route: 048
     Dates: start: 20211116, end: 20211116
  2. PALFORZIA [Suspect]
     Active Substance: PEANUT
     Dosage: 40 MG, 1X/DAY
     Route: 048
     Dates: start: 20220125, end: 20220214
  3. PALFORZIA [Suspect]
     Active Substance: PEANUT
     Dosage: 40 MG, ONCE, LAST DOSE PRIOR STOMACH PAIN, VOMITING AND ABDOMINAL PAIN
     Route: 048
     Dates: start: 20220125, end: 20220125
  4. PALFORZIA [Suspect]
     Active Substance: PEANUT
     Dosage: 40 MG, ONCE, LAST DOSE PRIOR UPSET STOMACH, VOMITING AND ABDOMINAL PAIN
     Route: 048
     Dates: start: 20220214, end: 20220214
  5. PALFORZIA [Suspect]
     Active Substance: PEANUT
     Dosage: 20 MG, 1X/DAY (DECREASED DOSE)
     Route: 048
     Dates: start: 2022, end: 20220312

REACTIONS (10)
  - Upper respiratory tract infection [Unknown]
  - Ocular hyperaemia [Unknown]
  - Eye pruritus [Unknown]
  - Eosinophil count increased [Unknown]
  - Sneezing [Unknown]
  - Nausea [Unknown]
  - Cough [Unknown]
  - Abdominal pain upper [Unknown]
  - Vomiting [Unknown]
  - Abdominal pain [Unknown]

NARRATIVE: CASE EVENT DATE: 20220125
